FAERS Safety Report 24414538 (Version 2)
Quarter: 2024Q4

REPORT INFORMATION
  Report Type: Spontaneous
  Country: GB (occurrence: GB)
  Receive Date: 20241009
  Receipt Date: 20241027
  Transmission Date: 20250114
  Serious: Yes (Death, Other)
  Sender: DEXCEL LTD.
  Company Number: None

PATIENT
  Age: 44 Year
  Sex: Female

DRUGS (3)
  1. VENLAFAXINE [Interacting]
     Active Substance: VENLAFAXINE HYDROCHLORIDE
     Indication: Product used for unknown indication
     Dosage: VARIOUS DOSAGES: TAKING VENLAFAXINE FOR 23 YEARS AND HAD PREVIOUSLY BEEN TAKING 150 MG ONCE A DAY...
  2. DULOXETINE [Interacting]
     Active Substance: DULOXETINE
     Indication: Product used for unknown indication
     Dosage: 60 MILLIGRAM
  3. SODIUM NITRATE [Interacting]
     Active Substance: SODIUM NITRATE
     Indication: Product used for unknown indication

REACTIONS (6)
  - Overdose [Fatal]
  - Suicidal ideation [Unknown]
  - Drug withdrawal syndrome [Unknown]
  - Mental disorder [Unknown]
  - Drug intolerance [Unknown]
  - Drug interaction [Unknown]

NARRATIVE: CASE EVENT DATE: 20240501
